FAERS Safety Report 7779777-3 (Version None)
Quarter: 2011Q3

REPORT INFORMATION
  Report Type: 
  Country: None (occurrence: None)
  Receive Date: 20110927
  Receipt Date: 20110914
  Transmission Date: 20111222
  Serious: Yes (Other)
  Sender: FDA-Public Use
  Company Number: US-JNJFOC-20110906302

PATIENT
  Sex: Female

DRUGS (3)
  1. EXTRA STRENGTH TYLENOL [Suspect]
     Indication: PRODUCT USED FOR UNKNOWN INDICATION
  2. EXTRA STRENGTH TYLENOL [Suspect]
  3. TYLENOL (CAPLET) [Concomitant]
     Indication: LIMB DISCOMFORT

REACTIONS (1)
  - LOSS OF CONSCIOUSNESS [None]
